FAERS Safety Report 8691523 (Version 5)
Quarter: 2014Q2

REPORT INFORMATION
  Report Type: Spontaneous
  Country: JP (occurrence: JP)
  Receive Date: 20120730
  Receipt Date: 20140422
  Transmission Date: 20141212
  Serious: Yes (Hospitalization, Other)
  Sender: FDA-Public Use
  Company Number: JP-PFIZER INC-2012180739

PATIENT
  Age: 56 Year
  Sex: Male
  Weight: 76 kg

DRUGS (1)
  1. SUTENT [Suspect]
     Indication: RENAL CANCER METASTATIC
     Dosage: 37.5 MG A DAY, FOR 3 WEEKS, FOLLOWED BY A 3-WEEK BREAK BEFORE BEGINNING THE NEXT DOSING CYCLE
     Route: 048
     Dates: start: 20120110, end: 20120705

REACTIONS (1)
  - Interstitial lung disease [Recovered/Resolved]
